FAERS Safety Report 4578768-3 (Version None)
Quarter: 2005Q1

REPORT INFORMATION
  Report Type: 
  Country: None (occurrence: None)
  Receive Date: 20050211
  Receipt Date: 20050201
  Transmission Date: 20050727
  Serious: Yes (Life-Threatening, Hospitalization)
  Sender: FDA-Public Use
  Company Number: DK-JNJFOC-20041203302

PATIENT
  Sex: Female
  Weight: 60 kg

DRUGS (1)
  1. SPORANOX [Suspect]
     Indication: ONYCHOMYCOSIS
     Dosage: FOR SEVEN DAYS EVERY FOURTH WEEK, REPEATED THREE TIMES.
     Route: 065
     Dates: start: 20040819, end: 20041104

REACTIONS (9)
  - ANAEMIA [None]
  - DYSPNOEA EXERTIONAL [None]
  - FATIGUE [None]
  - HEPATIC ENZYME ABNORMAL [None]
  - INFECTION [None]
  - MITRAL VALVE INCOMPETENCE [None]
  - OEDEMA PERIPHERAL [None]
  - SINUS BRADYCARDIA [None]
  - WEIGHT INCREASED [None]
